FAERS Safety Report 17942792 (Version 1)
Quarter: 2020Q2

REPORT INFORMATION
  Report Type: Spontaneous
  Country: GR (occurrence: GR)
  Receive Date: 20200625
  Receipt Date: 20200625
  Transmission Date: 20200714
  Serious: Yes (Hospitalization, Other)
  Sender: FDA-Public Use
  Company Number: NVSC2020GR119022

PATIENT
  Age: 28 Year
  Sex: Male

DRUGS (14)
  1. CALCIUM [Suspect]
     Active Substance: CALCIUM
     Dosage: 3000 MILLIGRAM, QD
     Route: 065
     Dates: start: 201901
  2. TAMOXIFEN [Concomitant]
     Active Substance: TAMOXIFEN
     Indication: PRODUCT USED FOR UNKNOWN INDICATION
     Dosage: 20 MILLIGRAM, QD
     Route: 065
  3. PARICALCITOL. [Concomitant]
     Active Substance: PARICALCITOL
     Indication: HYPERPARATHYROIDISM SECONDARY
     Dosage: 2.5 ?GR/HD
     Route: 042
     Dates: start: 201006
  4. CALCIUM CARBONATE. [Concomitant]
     Active Substance: CALCIUM CARBONATE
     Indication: HYPERPARATHYROIDISM SECONDARY
     Dosage: UNK
     Route: 065
  5. CALCIUM CARBONATE. [Concomitant]
     Active Substance: CALCIUM CARBONATE
     Dosage: 1500 MG, QD
     Route: 065
     Dates: start: 201701
  6. CINACALCET HYDROCHLORIDE. [Suspect]
     Active Substance: CINACALCET HYDROCHLORIDE
     Indication: HYPERPARATHYROIDISM SECONDARY
     Dosage: UNK
     Route: 048
  7. VITAMINE D [Concomitant]
     Active Substance: CHOLECALCIFEROL
     Indication: PRODUCT USED FOR UNKNOWN INDICATION
     Dosage: UNK
     Route: 065
  8. PARICALCITOL. [Concomitant]
     Active Substance: PARICALCITOL
     Dosage: 7.5 MICROGRAM/HD
     Route: 042
     Dates: start: 201901
  9. CALCIUM [Suspect]
     Active Substance: CALCIUM
     Indication: HYPERPARATHYROIDISM SECONDARY
     Dosage: 1500 MILLIGRAM, QD
     Route: 065
     Dates: start: 201201, end: 201701
  10. PARICALCITOL. [Concomitant]
     Active Substance: PARICALCITOL
     Dosage: 7.5 ?GR/HD
     Route: 042
     Dates: start: 201201
  11. PARICALCITOL. [Concomitant]
     Active Substance: PARICALCITOL
     Dosage: 5 ?GR/HD
     Route: 042
     Dates: start: 201301, end: 201701
  12. PREDNISONE. [Concomitant]
     Active Substance: PREDNISONE
     Indication: PRODUCT USED FOR UNKNOWN INDICATION
     Dosage: 40 MILLIGRAM, QD
     Route: 065
  13. CALCIUM CARBONATE. [Concomitant]
     Active Substance: CALCIUM CARBONATE
     Dosage: 1500 MG, QD
     Route: 065
     Dates: start: 201301
  14. CALCIUM CARBONATE. [Concomitant]
     Active Substance: CALCIUM CARBONATE
     Dosage: 1500 MG, QD
     Route: 065
     Dates: start: 201501

REACTIONS (2)
  - Calcinosis [Unknown]
  - Encapsulating peritoneal sclerosis [Recovering/Resolving]
